FAERS Safety Report 10709570 (Version 1)
Quarter: 2015Q1

REPORT INFORMATION
  Report Type: Spontaneous
  Country: US (occurrence: None)
  Receive Date: 20150113
  Receipt Date: 20150113
  Transmission Date: 20150721
  Serious: Yes (Other)
  Sender: FDA-Public Use
  Company Number: None

PATIENT
  Sex: Female

DRUGS (1)
  1. CAPECITABINE 500 MG [Suspect]
     Active Substance: CAPECITABINE
     Indication: COLON CANCER
     Dosage: ONE MONTH, 1000 MG, BID, ORAL
     Route: 048

REACTIONS (3)
  - Peripheral swelling [None]
  - Chronic obstructive pulmonary disease [None]
  - Asthma [None]
